FAERS Safety Report 9661315 (Version 2)
Quarter: 2013Q4

REPORT INFORMATION
  Report Type: Report from Study
  Country: ES (occurrence: ES)
  Receive Date: 20131031
  Receipt Date: 20131031
  Transmission Date: 20140711
  Serious: Yes (Hospitalization)
  Sender: FDA-Public Use
  Company Number: ES-ABBVIE-13P-144-1115799-00

PATIENT
  Age: 51 Year
  Sex: Female
  Weight: 39 kg

DRUGS (3)
  1. HUMIRA [Suspect]
     Indication: CROHN^S DISEASE
     Dosage: 160MG BASELINE/80MG WEEK 2
     Route: 058
     Dates: start: 20081215
  2. HUMIRA [Suspect]
     Route: 058
     Dates: end: 20130501
  3. AZATHIOPRINE [Concomitant]
     Indication: CROHN^S DISEASE

REACTIONS (3)
  - Coagulopathy [Recovered/Resolved]
  - Malnutrition [Recovered/Resolved]
  - Oral herpes [Recovered/Resolved]
